FAERS Safety Report 25957422 (Version 1)
Quarter: 2025Q4

REPORT INFORMATION
  Report Type: Spontaneous
  Country: EU (occurrence: EU)
  Receive Date: 20251024
  Receipt Date: 20251024
  Transmission Date: 20260118
  Serious: Yes (Other)
  Sender: JOHNSON AND JOHNSON
  Company Number: EU-JNJFOC-20250717952

PATIENT
  Sex: Female
  Weight: 64 kg

DRUGS (2)
  1. RYBREVANT [Suspect]
     Active Substance: AMIVANTAMAB-VMJW
     Indication: Non-small cell lung cancer metastatic
     Dosage: STARTING FROM WEEK 7
     Route: 065
     Dates: start: 20250608, end: 20250730
  2. RYBREVANT [Suspect]
     Active Substance: AMIVANTAMAB-VMJW
     Dosage: WEEKLY FROM WEEK 1 TO WEEK 4
     Route: 065

REACTIONS (4)
  - Renal failure [Unknown]
  - Inappropriate schedule of product administration [Unknown]
  - Malnutrition [Unknown]
  - Dehydration [Unknown]
